FAERS Safety Report 15638066 (Version 1)
Quarter: 2018Q4

REPORT INFORMATION
  Report Type: Spontaneous
  Country: US (occurrence: US)
  Receive Date: 20181120
  Receipt Date: 20181120
  Transmission Date: 20190205
  Serious: No
  Sender: FDA-Public Use
  Company Number: US-JNJFOC-20180733510

PATIENT
  Sex: Female

DRUGS (9)
  1. IMBRUVICA [Suspect]
     Active Substance: IBRUTINIB
     Indication: MALIGNANT LYMPHOID NEOPLASM
     Route: 048
  2. GLIMEPIRIDE. [Concomitant]
     Active Substance: GLIMEPIRIDE
  3. LEVEMIR [Concomitant]
     Active Substance: INSULIN DETEMIR
  4. METFORMIN [Concomitant]
     Active Substance: METFORMIN HYDROCHLORIDE
  5. IMBRUVICA [Suspect]
     Active Substance: IBRUTINIB
     Indication: MALIGNANT LYMPHOID NEOPLASM
     Route: 048
  6. ATORVASTATIN [Concomitant]
     Active Substance: ATORVASTATIN
  7. IMBRUVICA [Suspect]
     Active Substance: IBRUTINIB
     Indication: MALIGNANT LYMPHOID NEOPLASM
     Route: 048
  8. LISINOPRIL. [Concomitant]
     Active Substance: LISINOPRIL
  9. HYDROCHLOROTHIAZIDE. [Concomitant]
     Active Substance: HYDROCHLOROTHIAZIDE

REACTIONS (2)
  - Candida infection [Unknown]
  - Tooth extraction [Unknown]
